FAERS Safety Report 6416602-7 (Version None)
Quarter: 2009Q4

REPORT INFORMATION
  Report Type: 
  Country: None (occurrence: None)
  Receive Date: 20091023
  Receipt Date: 20091014
  Transmission Date: 20100525
  Serious: Yes (Other)
  Sender: FDA-Public Use
  Company Number: TRP_06503_2009

PATIENT
  Age: 49 Year
  Sex: Female

DRUGS (2)
  1. INFERGEN [Suspect]
     Indication: HEPATITIS C
     Dosage: 9 UG QD, 9 UG QOD
  2. RIBAVIRIN [Suspect]
     Indication: HEPATITIS C
     Dosage: DF

REACTIONS (6)
  - ENDOPHTHALMITIS [None]
  - MALAISE [None]
  - OCULAR SARCOIDOSIS [None]
  - PYREXIA [None]
  - RENAL FAILURE ACUTE [None]
  - UVEITIS [None]
